FAERS Safety Report 17440305 (Version 2)
Quarter: 2020Q1

REPORT INFORMATION
  Report Type: Report from Study
  Country: BE (occurrence: BE)
  Receive Date: 20200220
  Receipt Date: 20200226
  Transmission Date: 20200409
  Serious: Yes (Hospitalization)
  Sender: FDA-Public Use
  Company Number: BE-IPSEN BIOPHARMACEUTICALS, INC.-2020-03139

PATIENT
  Age: 81 Year
  Sex: Male

DRUGS (9)
  1. NOBITEN [Concomitant]
     Active Substance: NEBIVOLOL
  2. TAMSULOSINE [Concomitant]
     Active Substance: TAMSULOSIN HYDROCHLORIDE
  3. TORREM [Concomitant]
  4. NOVALGIN (METAMIZOLE SODIUM) [Concomitant]
     Active Substance: METAMIZOLE SODIUM
     Dosage: 5MG X IF NEEDED MAX 6 TABLETS/DAY
  5. CRESTOR [Concomitant]
     Active Substance: ROSUVASTATIN CALCIUM
  6. NITRODERM PATCH [Concomitant]
  7. SOMATULINE AUTOGEL [Suspect]
     Active Substance: LANREOTIDE ACETATE
     Indication: NEUROENDOCRINE TUMOUR
     Route: 058
     Dates: start: 20191211
  8. BREXINE [Concomitant]
     Active Substance: PIROXICAM BETADEX
  9. ASAFLOW [Concomitant]
     Active Substance: ASPIRIN

REACTIONS (2)
  - Hyperglycaemia [Recovered/Resolved]
  - Feeling abnormal [Recovered/Resolved]

NARRATIVE: CASE EVENT DATE: 20200206
